FAERS Safety Report 22389872 (Version 3)
Quarter: 2023Q2

REPORT INFORMATION
  Report Type: Report from Study
  Country: CA (occurrence: CA)
  Receive Date: 20230531
  Receipt Date: 20230605
  Transmission Date: 20230721
  Serious: Yes (Other)
  Sender: FDA-Public Use
  Company Number: CA-HLS-202301376

PATIENT
  Age: 61 Year
  Sex: Male

DRUGS (3)
  1. CLOZARIL [Suspect]
     Active Substance: CLOZAPINE
     Indication: Product used for unknown indication
     Route: 048
     Dates: start: 20180605
  2. LAMICTAL [Concomitant]
     Active Substance: LAMOTRIGINE
     Indication: Product used for unknown indication
     Route: 065
  3. FERROUS SULFATE [Concomitant]
     Active Substance: FERROUS SULFATE
     Indication: Iron deficiency
     Dosage: 600 AT BEDTIME
     Route: 048
     Dates: start: 20230227

REACTIONS (7)
  - Lymphadenopathy [Unknown]
  - Persistent depressive disorder [Unknown]
  - Follicular lymphoma [Unknown]
  - Iron deficiency [Unknown]
  - Platelet count decreased [Unknown]
  - Renal failure [Unknown]
  - Disease progression [Unknown]

NARRATIVE: CASE EVENT DATE: 20210101
